FAERS Safety Report 5472695-5 (Version None)
Quarter: 2007Q4

REPORT INFORMATION
  Report Type: 
  Country: None (occurrence: None)
  Receive Date: 20071001
  Receipt Date: 20061016
  Transmission Date: 20080405
  Serious: No
  Sender: FDA-Public Use
  Company Number: US-ASTRAZENECA-2006UW19995

PATIENT
  Age: 60 Year
  Sex: Female
  Weight: 80.7 kg

DRUGS (4)
  1. ARIMIDEX [Suspect]
     Indication: BREAST CANCER FEMALE
     Route: 048
     Dates: start: 20060101
  2. LIPITOR [Concomitant]
  3. VERAPAMIL [Concomitant]
  4. PAXIL [Concomitant]

REACTIONS (1)
  - ABNORMAL DREAMS [None]
